FAERS Safety Report 14997953 (Version 1)
Quarter: 2018Q2

REPORT INFORMATION
  Report Type: Spontaneous
  Country: US (occurrence: US)
  Receive Date: 20180611
  Receipt Date: 20180611
  Transmission Date: 20180711
  Serious: No
  Sender: FDA-Public Use
  Company Number: US-FOUNDATIONCONSUMERHC-2018-US-007905

PATIENT
  Age: 38 Year
  Sex: Female
  Weight: 68.04 kg

DRUGS (5)
  1. PRE-WORKOUT SUPPLEMENT TABLET [Concomitant]
     Dosage: AS DIRECTED
     Route: 048
  2. PLAN B ONE-STEP [Suspect]
     Active Substance: LEVONORGESTREL
     Indication: POST COITAL CONTRACEPTION
     Dosage: 1.5MG
     Route: 048
     Dates: start: 20180510, end: 20180510
  3. LEVONORGESTREL (UNSPECIFIED) [Suspect]
     Active Substance: LEVONORGESTREL
     Indication: POST COITAL CONTRACEPTION
     Dosage: 1.5MG
     Route: 048
     Dates: start: 20180424, end: 20180424
  4. PLAN B ONE-STEP [Suspect]
     Active Substance: LEVONORGESTREL
     Indication: POST COITAL CONTRACEPTION
     Dosage: 1.5 MG
     Route: 048
     Dates: start: 2017, end: 2017
  5. POST-WORKOUT PROTEIN POWDER [Concomitant]
     Dosage: UNK
     Route: 048

REACTIONS (3)
  - Breast tenderness [Not Recovered/Not Resolved]
  - Menstrual disorder [Recovered/Resolved]
  - Abdominal distension [Not Recovered/Not Resolved]

NARRATIVE: CASE EVENT DATE: 2017
